FAERS Safety Report 7228245-6 (Version None)
Quarter: 2011Q1

REPORT INFORMATION
  Report Type: 
  Country: None (occurrence: None)
  Receive Date: 20110114
  Receipt Date: 20110110
  Transmission Date: 20110831
  Serious: Yes (Hospitalization)
  Sender: FDA-Public Use
  Company Number: FR-CEPHALON-2010006217

PATIENT
  Sex: Male
  Weight: 64 kg

DRUGS (4)
  1. VELCADE [Suspect]
     Route: 042
     Dates: end: 20101213
  2. DEXAMETHASONE [Suspect]
     Indication: MULTIPLE MYELOMA
     Route: 048
     Dates: start: 20101122, end: 20101213
  3. VELCADE [Suspect]
     Indication: MULTIPLE MYELOMA
     Route: 042
     Dates: start: 20101122
  4. TREANDA [Suspect]
     Indication: MULTIPLE MYELOMA
     Route: 042
     Dates: start: 20101122, end: 20101213

REACTIONS (4)
  - RENAL FAILURE ACUTE [None]
  - HYPERCALCAEMIA [None]
  - STAPHYLOCOCCAL SEPSIS [None]
  - RESPIRATORY DISTRESS [None]
